FAERS Safety Report 8277682-X (Version None)
Quarter: 2012Q2

REPORT INFORMATION
  Report Type: 
  Country: None (occurrence: None)
  Receive Date: 20120412
  Receipt Date: 20120330
  Transmission Date: 20120825
  Serious: Yes (Hospitalization, Other)
  Sender: FDA-Public Use
  Company Number: JP-ROCHE-GNE312584

PATIENT
  Age: 62 Year
  Sex: Male
  Weight: 50 kg

DRUGS (4)
  1. RANIBIZUMAB [Suspect]
     Route: 050
     Dates: start: 20100909, end: 20100909
  2. MOXIFLOXACIN HYDROCHLORIDE [Concomitant]
     Dates: start: 20100801, end: 20100901
  3. RANIBIZUMAB [Suspect]
     Indication: AGE-RELATED MACULAR DEGENERATION
     Route: 050
     Dates: start: 20100812
  4. GATIFLOXACIN [Concomitant]
     Dates: start: 20100801, end: 20110901

REACTIONS (8)
  - RETINAL HAEMORRHAGE [None]
  - IRITIS [None]
  - VITRITIS [None]
  - IRIDOCYCLITIS [None]
  - VASCULITIS [None]
  - HYPOPYON [None]
  - UVEITIS [None]
  - ENDOPHTHALMITIS [None]
